FAERS Safety Report 10145628 (Version 2)
Quarter: 2014Q2

REPORT INFORMATION
  Report Type: Spontaneous
  Country: US (occurrence: US)
  Receive Date: 20140501
  Receipt Date: 20140618
  Transmission Date: 20141212
  Serious: Yes (Hospitalization, Other)
  Sender: FDA-Public Use
  Company Number: US-ACCORD-023352

PATIENT
  Age: 42 Year
  Sex: Female
  Weight: 90.7 kg

DRUGS (10)
  1. TRAMADOL/TRAMADOL HYDROCHLORIDE [Suspect]
     Indication: PRODUCT USED FOR UNKNOWN INDICATION
     Route: 048
     Dates: start: 20131219
  2. PERCOCET [Suspect]
     Indication: PRODUCT USED FOR UNKNOWN INDICATION
     Dosage: 7.5/325 MG  TID
     Route: 048
     Dates: start: 20131219
  3. INVESTIGATIONAL DRUG [Suspect]
     Indication: CONSTIPATION
     Dates: start: 20140227
  4. CLONAZEPAM [Concomitant]
     Dates: start: 201310
  5. METOPROLOL [Concomitant]
     Dates: start: 2009
  6. SERTRALINE [Concomitant]
     Dates: start: 201310
  7. ALBUTEROL [Concomitant]
     Dates: start: 1981
  8. ZESTORETIC [Concomitant]
     Dates: start: 2009
  9. LORATADINE [Concomitant]
     Dates: start: 2010
  10. METHOCARBAMOL [Concomitant]
     Dates: start: 201311

REACTIONS (17)
  - Syncope [Recovered/Resolved]
  - Vertigo [Recovered/Resolved]
  - Hypertension [Recovered/Resolved]
  - Malaise [Recovered/Resolved]
  - Palpitations [Recovered/Resolved]
  - Dyspnoea [Recovered/Resolved]
  - Hyperhidrosis [Recovered/Resolved]
  - Nausea [Recovered/Resolved]
  - Back pain [Recovered/Resolved]
  - Headache [Recovered/Resolved]
  - Hypoaesthesia [Recovered/Resolved]
  - Anxiety [Recovered/Resolved]
  - Depression [Recovered/Resolved]
  - Dizziness [Unknown]
  - Visual impairment [Unknown]
  - Abdominal pain [Unknown]
  - Chest pain [Recovered/Resolved]
